FAERS Safety Report 8652843 (Version 5)
Quarter: 2013Q2

REPORT INFORMATION
  Report Type: Spontaneous
  Country: US (occurrence: US)
  Receive Date: 20120706
  Receipt Date: 20130417
  Transmission Date: 20140414
  Serious: Yes (Hospitalization)
  Sender: FDA-Public Use
  Company Number: US-GLAXOSMITHKLINE-A0983267A

PATIENT
  Age: 40 Year
  Sex: Female

DRUGS (1)
  1. FLOLAN [Suspect]
     Indication: PRODUCT USED FOR UNKNOWN INDICATION
     Dosage: 39NGKM CONTINUOUS
     Route: 042
     Dates: start: 20080723

REACTIONS (3)
  - Right ventricular failure [Recovered/Resolved]
  - Fluid retention [Recovered/Resolved]
  - Gastrointestinal infection [Recovered/Resolved]
